FAERS Safety Report 10160388 (Version 1)
Quarter: 2014Q2

REPORT INFORMATION
  Report Type: Spontaneous
  Country: DE (occurrence: DE)
  Receive Date: 20140508
  Receipt Date: 20140508
  Transmission Date: 20141212
  Serious: Yes (Hospitalization)
  Sender: FDA-Public Use
  Company Number: DE-PFIZER INC-2014123511

PATIENT
  Age: 57 Year
  Sex: Female

DRUGS (1)
  1. XALATAN [Suspect]
     Indication: GLAUCOMA
     Dosage: 0-0-1
     Dates: start: 2008

REACTIONS (4)
  - Nasal congestion [Unknown]
  - Nasal discomfort [Unknown]
  - Throat irritation [Unknown]
  - Dysphonia [Unknown]
